FAERS Safety Report 9931413 (Version 2)
Quarter: 2014Q1

REPORT INFORMATION
  Report Type: Spontaneous
  Country: IT (occurrence: IT)
  Receive Date: 20140228
  Receipt Date: 20140307
  Transmission Date: 20141002
  Serious: Yes (Other)
  Sender: FDA-Public Use
  Company Number: IT-BRISTOL-MYERS SQUIBB COMPANY-20240578

PATIENT
  Age: 40 Year
  Sex: Male

DRUGS (2)
  1. SUSTIVA [Suspect]
     Indication: HIV INFECTION
     Route: 048
     Dates: end: 20140123
  2. TRUVADA [Suspect]
     Indication: HIV INFECTION
     Dosage: 1DF=1UNIT NOS
     Route: 048
     Dates: end: 20140126

REACTIONS (2)
  - Gastric disorder [Recovered/Resolved]
  - Nausea [Recovered/Resolved]
